FAERS Safety Report 4677526-9 (Version None)
Quarter: 2005Q2

REPORT INFORMATION
  Report Type: 
  Country: None (occurrence: None)
  Receive Date: 20050526
  Receipt Date: 20050526
  Transmission Date: 20051028
  Serious: Yes (Death)
  Sender: FDA-Public Use
  Company Number: None

PATIENT
  Age: 57 Year
  Sex: Male
  Weight: 82 kg

DRUGS (9)
  1. MYLOTARG [Suspect]
     Indication: ACUTE PROMYELOCYTIC LEUKAEMIA
     Dosage: 18MG  X1  INTRAVENOU
     Route: 042
     Dates: start: 20050504, end: 20050504
  2. LIPITOR [Suspect]
     Indication: HYPERLIPIDAEMIA
     Dosage: 20MG   DAILY   ORAL
     Route: 048
     Dates: start: 20040601, end: 20050514
  3. TEQUIN [Concomitant]
  4. FLUCONAZOLE [Concomitant]
  5. ACYCLOVIR [Concomitant]
  6. VANCOMYCIN [Concomitant]
  7. CEFEPIME [Concomitant]
  8. LIPITOR [Concomitant]
  9. LEXAPRO [Concomitant]

REACTIONS (3)
  - FEBRILE NEUTROPENIA [None]
  - HEPATIC FAILURE [None]
  - RENAL FAILURE [None]
